FAERS Safety Report 12366613 (Version 3)
Quarter: 2016Q2

REPORT INFORMATION
  Report Type: Spontaneous
  Country: IT (occurrence: IT)
  Receive Date: 20160513
  Receipt Date: 20160527
  Transmission Date: 20160815
  Serious: Yes (Other)
  Sender: FDA-Public Use
  Company Number: IT-ASTRAZENECA-2016SE50794

PATIENT
  Age: 5218 Day
  Sex: Female
  Weight: 75 kg

DRUGS (9)
  1. ARVENUM [Suspect]
     Active Substance: DIOSMIN
     Indication: INTENTIONAL SELF-INJURY
     Dosage: 500.0MG ONCE/SINGLE ADMINISTRATION
     Route: 048
     Dates: start: 20160411, end: 20160411
  2. OKI [Suspect]
     Active Substance: KETOPROFEN LYSINE
     Indication: INTENTIONAL SELF-INJURY
     Dosage: 20.0DF ONCE/SINGLE ADMINISTRATION
     Route: 048
     Dates: start: 20160411, end: 20160411
  3. VERMOX [Suspect]
     Active Substance: MEBENDAZOLE
     Indication: INTENTIONAL SELF-INJURY
     Dosage: 100.0MG ONCE/SINGLE ADMINISTRATION
     Route: 048
     Dates: start: 20160411, end: 20160411
  4. CETIRIZINE [Suspect]
     Active Substance: CETIRIZINE HYDROCHLORIDE
     Indication: INTENTIONAL SELF-INJURY
     Dosage: 90.0MG ONCE/SINGLE ADMINISTRATION
     Route: 048
     Dates: start: 20160411, end: 20160411
  5. OMEPRAZOLE. [Suspect]
     Active Substance: OMEPRAZOLE
     Indication: INTENTIONAL SELF-INJURY
     Dosage: 14.0DF ONCE/SINGLE ADMINISTRATION
     Route: 048
     Dates: start: 20160411, end: 20160411
  6. PARACETAMOL [Suspect]
     Active Substance: ACETAMINOPHEN
     Indication: INTENTIONAL SELF-INJURY
     Dosage: 14.0G ONCE/SINGLE ADMINISTRATION
     Route: 048
     Dates: start: 20160411, end: 20160411
  7. LEVOFLOXACIN. [Suspect]
     Active Substance: LEVOFLOXACIN
     Indication: INTENTIONAL SELF-INJURY
     Dosage: 1000.0MG ONCE/SINGLE ADMINISTRATION
     Route: 048
     Dates: start: 20160411, end: 20160411
  8. CEFIXIME. [Suspect]
     Active Substance: CEFIXIME
     Indication: INTENTIONAL SELF-INJURY
     Dosage: 245.0DF ONCE/SINGLE ADMINISTRATION
     Route: 048
     Dates: start: 20160411, end: 20160411
  9. AMOXICILLIN + CLAVULANIC ACID [Suspect]
     Active Substance: AMOXICILLIN\CLAVULANIC ACID
     Indication: INTENTIONAL SELF-INJURY
     Dosage: 2.0DF ONCE/SINGLE ADMINISTRATION
     Route: 048
     Dates: start: 20160411, end: 20160411

REACTIONS (9)
  - Drug abuse [Unknown]
  - Intentional self-injury [Unknown]
  - Somnolence [Unknown]
  - Vertigo [Unknown]
  - Dizziness [Unknown]
  - Abdominal pain [Unknown]
  - Toxicity to various agents [Unknown]
  - Tongue coated [Unknown]
  - Asthenia [Unknown]

NARRATIVE: CASE EVENT DATE: 20160411
